FAERS Safety Report 6902630-1 (Version None)
Quarter: 2010Q3

REPORT INFORMATION
  Report Type: 
  Country: None (occurrence: None)
  Receive Date: 20100803
  Receipt Date: 20080707
  Transmission Date: 20110219
  Serious: No
  Sender: FDA-Public Use
  Company Number: US-PFIZER INC-2008057228

PATIENT
  Sex: Female
  Weight: 100 kg

DRUGS (6)
  1. LYRICA [Suspect]
     Indication: NEURALGIA
     Dates: start: 20070401
  2. NEXIUM [Concomitant]
  3. MOBIC [Concomitant]
  4. ULTRAM [Concomitant]
  5. ESTRACE [Concomitant]
  6. ZOLOFT [Concomitant]

REACTIONS (6)
  - ARTHRALGIA [None]
  - BALANCE DISORDER [None]
  - GAIT DISTURBANCE [None]
  - MYALGIA [None]
  - OEDEMA PERIPHERAL [None]
  - SENSATION OF HEAVINESS [None]
